FAERS Safety Report 17888852 (Version 5)
Quarter: 2020Q3

REPORT INFORMATION
  Report Type: Spontaneous
  Country: IT (occurrence: IT)
  Receive Date: 20200612
  Receipt Date: 20200729
  Transmission Date: 20201103
  Serious: Yes (Disabling)
  Sender: FDA-Public Use
  Company Number: IT-AMAG PHARMACEUTICALS, INC.-AMAG202002024

PATIENT
  Age: 62 Year
  Sex: Female

DRUGS (2)
  1. INTRAROSA [Suspect]
     Active Substance: PRASTERONE
     Indication: ATROPHIC VULVOVAGINITIS
     Dosage: 6.5 MG (1 PESSARY) PER DAY
     Route: 067
     Dates: start: 20200518, end: 20200529
  2. RED RICE FOR 10 YEARS [Concomitant]
     Indication: BLOOD CHOLESTEROL INCREASED

REACTIONS (5)
  - Facial paresis [Recovered/Resolved]
  - Oral dysaesthesia [Recovered/Resolved]
  - Headache [Not Recovered/Not Resolved]
  - Illness [Recovered/Resolved]
  - Abdominal pain lower [Unknown]
